FAERS Safety Report 4422301-3 (Version None)
Quarter: 2004Q3

REPORT INFORMATION
  Report Type: 
  Country: None (occurrence: None)
  Receive Date: 20040810
  Receipt Date: 20040804
  Transmission Date: 20050211
  Serious: Yes (Hospitalization)
  Sender: FDA-Public Use
  Company Number: PHRM2004FR02507

PATIENT
  Age: 78 Year
  Sex: Female

DRUGS (2)
  1. VOLTAREN [Suspect]
     Dosage: 150 MG, DAILY
     Route: 048
     Dates: end: 20030527
  2. VOLTARENE EMULGEL [Suspect]
     Dosage: 3 DF, DAILY
     Route: 003
     Dates: end: 20030527

REACTIONS (9)
  - BACK PAIN [None]
  - BLOOD CREATININE INCREASED [None]
  - GAIT DISTURBANCE [None]
  - GENERAL PHYSICAL HEALTH DETERIORATION [None]
  - HYPERTHERMIA [None]
  - NEPHROLITHIASIS [None]
  - PYELONEPHRITIS [None]
  - RENAL FAILURE ACUTE [None]
  - SEPTIC SHOCK [None]
